FAERS Safety Report 20517721 (Version 11)
Quarter: 2022Q3

REPORT INFORMATION
  Report Type: Report from Study
  Country: NZ (occurrence: None)
  Receive Date: 20220225
  Receipt Date: 20220719
  Transmission Date: 20221027
  Serious: Yes (Hospitalization)
  Sender: FDA-Public Use
  Company Number: NZ-Eisai Medical Research-EC-2022-109018

PATIENT
  Age: 59 Year
  Sex: Female
  Weight: 85.9 kg

DRUGS (11)
  1. LENVATINIB [Suspect]
     Active Substance: LENVATINIB
     Indication: Renal cell carcinoma
     Route: 048
     Dates: start: 20220203, end: 20220212
  2. LENVATINIB [Suspect]
     Active Substance: LENVATINIB
     Route: 048
     Dates: start: 20220317
  3. FAVEZELIMAB [Suspect]
     Active Substance: FAVEZELIMAB
     Indication: Renal cell carcinoma
     Dosage: 1000 MG MK4280A CONTAINS 800 MG MK-4280 AND 200 MG PEMBROLIZUMAB (MK-3475)
     Route: 041
     Dates: start: 20220203, end: 20220203
  4. LEVOTHYROXINE SODIUM [Concomitant]
     Active Substance: LEVOTHYROXINE SODIUM
     Dates: start: 201301
  5. DICLOFENAC [Concomitant]
     Active Substance: DICLOFENAC
     Dates: start: 202001
  6. ORPHENADRINE [Concomitant]
     Active Substance: ORPHENADRINE
     Dates: start: 202001
  7. ACETAMINOPHEN [Concomitant]
     Active Substance: ACETAMINOPHEN
     Dates: start: 202001
  8. FLUTICASONE PROPIONATE [Concomitant]
     Active Substance: FLUTICASONE PROPIONATE
     Dates: start: 201801
  9. GAVISCON [Concomitant]
     Active Substance: ALUMINUM HYDROXIDE\MAGNESIUM CARBONATE
     Dates: start: 201801
  10. POLY-TEARS [Concomitant]
     Dates: start: 20191031
  11. PEMBROLIZUMAB [Suspect]
     Active Substance: PEMBROLIZUMAB

REACTIONS (2)
  - Immune-mediated hepatitis [Recovered/Resolved]
  - Drug eruption [Recovered/Resolved]

NARRATIVE: CASE EVENT DATE: 20220210
